FAERS Safety Report 19828564 (Version 1)
Quarter: 2021Q3

REPORT INFORMATION
  Report Type: Spontaneous
  Country: ES (occurrence: ES)
  Receive Date: 20210914
  Receipt Date: 20210914
  Transmission Date: 20211014
  Serious: Yes (Life-Threatening, Hospitalization)
  Sender: FDA-Public Use
  Company Number: ES-ROCHE-2907801

PATIENT
  Age: 67 Year
  Sex: Female
  Weight: 67 kg

DRUGS (2)
  1. METILPREDNISOLONA [Concomitant]
     Active Substance: METHYLPREDNISOLONE
     Indication: COVID-19
     Dosage: OLVO AND SOLVENT FOR INJECTABLE SOLUTION EFG, 1 VIAL + 1 AMPOULE?SOLVENT
     Route: 042
     Dates: start: 20210717
  2. ROACTEMRA [Suspect]
     Active Substance: TOCILIZUMAB
     Indication: COVID-19
     Dosage: FORM STRENGTH: 20 MG/ML, 1 VIAL OF 10 ML
     Route: 042
     Dates: start: 20210715, end: 20210715

REACTIONS (2)
  - Diverticular perforation [Recovering/Resolving]
  - Off label use [Unknown]

NARRATIVE: CASE EVENT DATE: 20210804
